FAERS Safety Report 20429680 (Version 1)
Quarter: 2022Q1

REPORT INFORMATION
  Report Type: Report from Study
  Country: FR (occurrence: FR)
  Receive Date: 20220204
  Receipt Date: 20220204
  Transmission Date: 20220423
  Serious: Yes (Hospitalization)
  Sender: FDA-Public Use
  Company Number: FR-SERVIER-S19009793

PATIENT

DRUGS (6)
  1. ONCASPAR [Suspect]
     Active Substance: PEGASPARGASE
     Indication: Acute lymphocytic leukaemia
     Dosage: 3375 IU ON D12 AND D26 OF INDUCTION PHASE
     Route: 042
     Dates: start: 20170612
  2. TN UNSPECIFIED [Concomitant]
     Indication: Product used for unknown indication
     Dosage: 20 MG, BID
     Route: 065
  3. Calcidose [Concomitant]
     Indication: Product used for unknown indication
     Dosage: 500 MG, BID
     Route: 065
  4. CHOLECALCIFEROL [Concomitant]
     Active Substance: CHOLECALCIFEROL
     Indication: Product used for unknown indication
     Dosage: 100000 IU, QD
     Route: 065
  5. Eludril [Concomitant]
     Indication: Product used for unknown indication
     Dosage: UNK, QID
     Route: 065
  6. ONDANSETRON [Concomitant]
     Active Substance: ONDANSETRON
     Indication: Nausea

REACTIONS (3)
  - Septic shock [Recovered/Resolved]
  - Febrile bone marrow aplasia [Recovered/Resolved]
  - Fungal infection [Recovered/Resolved]

NARRATIVE: CASE EVENT DATE: 20170701
